FAERS Safety Report 19933586 (Version 1)
Quarter: 2021Q4

REPORT INFORMATION
  Report Type: Spontaneous
  Country: US (occurrence: US)
  Receive Date: 20211008
  Receipt Date: 20211008
  Transmission Date: 20220303
  Serious: Yes (Death, Other)
  Sender: FDA-Public Use
  Company Number: US-SA-SAC20211007000989

PATIENT
  Age: 62 Year
  Sex: Female

DRUGS (1)
  1. DIMETHICONE\MENTHOL\PRAMOXINE HYDROCHLORIDE [Suspect]
     Active Substance: DIMETHICONE\MENTHOL\PRAMOXINE HYDROCHLORIDE
     Dosage: UNK

REACTIONS (4)
  - Mesothelioma [Fatal]
  - Occupational exposure to product [Fatal]
  - Pain [Unknown]
  - Anxiety [Unknown]

NARRATIVE: CASE EVENT DATE: 20180101
